FAERS Safety Report 12977497 (Version 1)
Quarter: 2016Q4

REPORT INFORMATION
  Report Type: Spontaneous
  Country: US (occurrence: US)
  Receive Date: 20161125
  Receipt Date: 20161125
  Transmission Date: 20170207
  Serious: Yes (Disabling)
  Sender: FDA-Public Use
  Company Number: None

PATIENT
  Age: 29 Year
  Sex: Female
  Weight: 65.25 kg

DRUGS (3)
  1. ZINC [Concomitant]
     Active Substance: ZINC\ZINC CHLORIDE
  2. AZELEX [Suspect]
     Active Substance: AZELAIC ACID
     Indication: ACNE
     Dosage: ?          QUANTITY:1 APPLICATION;?
     Route: 061
  3. VITAMIN C [Concomitant]
     Active Substance: ASCORBIC ACID

REACTIONS (2)
  - Product label issue [None]
  - Exposure during breast feeding [None]

NARRATIVE: CASE EVENT DATE: 20161124
